FAERS Safety Report 18987221 (Version 1)
Quarter: 2021Q1

REPORT INFORMATION
  Report Type: Spontaneous
  Country: US (occurrence: US)
  Receive Date: 20210309
  Receipt Date: 20210309
  Transmission Date: 20210420
  Serious: No
  Sender: FDA-Public Use
  Company Number: None

PATIENT
  Age: 57 Year
  Sex: Male
  Weight: 80.1 kg

DRUGS (6)
  1. MIRALAX [Concomitant]
     Active Substance: POLYETHYLENE GLYCOL 3350
  2. INLYTA [Suspect]
     Active Substance: AXITINIB
     Indication: RENAL CANCER
     Route: 048
     Dates: start: 20190515
  3. ZETIA [Concomitant]
     Active Substance: EZETIMIBE
  4. MELATONIN [Concomitant]
     Active Substance: MELATONIN
  5. DEXAMETHASONE. [Concomitant]
     Active Substance: DEXAMETHASONE
  6. LORATADINE. [Concomitant]
     Active Substance: LORATADINE

REACTIONS (3)
  - Pruritus [None]
  - Paraesthesia [None]
  - Erythema [None]

NARRATIVE: CASE EVENT DATE: 20210309
